FAERS Safety Report 6238093 (Version 2)
Quarter: 2020Q3

REPORT INFORMATION
  Report Type: Report from Study
  Country: PL (occurrence: PL)
  Receive Date: 20070213
  Receipt Date: 20070305
  Transmission Date: 20201104
  Serious: Yes (Hospitalization)
  Sender: FDA-Public Use
  Company Number: PL-JNJFOC-20070200442

PATIENT
  Age: 33 Year
  Sex: Female
  Weight: 71.67 kg

DRUGS (16)
  1. HYDROXYZINE [Concomitant]
     Active Substance: HYDROXYZINE HYDROCHLORIDE
     Indication: ANXIETY
     Route: 048
  2. TMC114 [Suspect]
     Active Substance: DARUNAVIR
     Indication: HIV INFECTION
     Route: 048
  3. PLACEBO [Suspect]
     Active Substance: UNSPECIFIED INGREDIENT
     Indication: HIV INFECTION
     Route: 048
  4. COTRIMOXAZOLE [Concomitant]
     Active Substance: SULFAMETHOXAZOLE\TRIMETHOPRIM
     Indication: ANTIFUNGAL PROPHYLAXIS
     Route: 048
  5. LACTOBACILLUS RHAMNOSUS [Concomitant]
     Active Substance: LACTOBACILLUS RHAMNOSUS
     Indication: ANTIDIARRHOEAL SUPPORTIVE CARE
     Route: 065
  6. ATROPINE SULFATE\DIPHENOXYLATE HYDROCHLORIDE [Concomitant]
     Active Substance: ATROPINE SULFATE\DIPHENOXYLATE HYDROCHLORIDE
     Indication: DIARRHOEA
     Route: 048
  7. RITONAVIR. [Suspect]
     Active Substance: RITONAVIR
     Indication: HIV INFECTION
     Route: 048
  8. EPIVIR [Concomitant]
     Active Substance: LAMIVUDINE
     Indication: HIV INFECTION
     Route: 048
  9. CLARITHROMYCIN. [Concomitant]
     Active Substance: CLARITHROMYCIN
     Indication: PROPHYLAXIS
     Route: 048
  10. DARUNAVIR [Suspect]
     Active Substance: DARUNAVIR
     Indication: HIV INFECTION
     Route: 048
  11. COTRIMOXAZOLE [Concomitant]
     Active Substance: SULFAMETHOXAZOLE\TRIMETHOPRIM
     Indication: TOXOPLASMOSIS PROPHYLAXIS
     Route: 048
  12. METOPROLOL. [Concomitant]
     Active Substance: METOPROLOL
     Indication: TACHYCARDIA
     Route: 048
  13. PREDNISONE. [Concomitant]
     Active Substance: PREDNISONE
     Indication: CYTOMEGALOVIRUS CHORIORETINITIS
     Route: 048
  14. VIREAD [Concomitant]
     Active Substance: TENOFOVIR DISOPROXIL FUMARATE
     Indication: HIV INFECTION
     Route: 048
  15. SUSTIVA [Concomitant]
     Active Substance: EFAVIRENZ
     Indication: HIV INFECTION
     Route: 048
  16. LEXIVA [Concomitant]
     Active Substance: FOSAMPRENAVIR CALCIUM
     Indication: HIV INFECTION
     Route: 048

REACTIONS (2)
  - Immune reconstitution inflammatory syndrome [Recovered/Resolved]
  - Cytomegalovirus chorioretinitis [None]

NARRATIVE: CASE EVENT DATE: 20060718
